FAERS Safety Report 12670966 (Version 1)
Quarter: 2016Q3

REPORT INFORMATION
  Report Type: Spontaneous
  Country: US (occurrence: US)
  Receive Date: 20160822
  Receipt Date: 20160822
  Transmission Date: 20161109
  Serious: No
  Sender: FDA-Public Use
  Company Number: US-JAZZ-2016-US-005933

PATIENT
  Sex: Female

DRUGS (25)
  1. XYREM [Suspect]
     Active Substance: SODIUM OXYBATE
     Indication: NARCOLEPSY
     Dosage: 2.25 G, BID
     Route: 048
     Dates: start: 200309, end: 200310
  2. METHOTREXATE. [Concomitant]
     Active Substance: METHOTREXATE
  3. TRETINOIN. [Concomitant]
     Active Substance: TRETINOIN
  4. METFORMIN HCL [Concomitant]
     Active Substance: METFORMIN HYDROCHLORIDE
  5. ACYCLOVIR. [Concomitant]
     Active Substance: ACYCLOVIR
  6. DULOXETINE. [Concomitant]
     Active Substance: DULOXETINE
  7. MAGNESIUM GLUCONICUM [Concomitant]
  8. XYREM [Suspect]
     Active Substance: SODIUM OXYBATE
     Dosage: DOSE ADJUSTMENTS
     Route: 048
  9. XYREM [Suspect]
     Active Substance: SODIUM OXYBATE
     Dosage: DOSE ADJUSTMENTS
     Route: 048
  10. TRINESSA [Concomitant]
     Active Substance: ETHINYL ESTRADIOL\NORGESTIMATE
  11. XYREM [Suspect]
     Active Substance: SODIUM OXYBATE
     Dosage: 4.5 G, BID
     Route: 048
     Dates: start: 200603, end: 200701
  12. LASIX [Concomitant]
     Active Substance: FUROSEMIDE
  13. TOPAMAX [Concomitant]
     Active Substance: TOPIRAMATE
  14. LYRICA [Concomitant]
     Active Substance: PREGABALIN
  15. VITAMIN D [Concomitant]
     Active Substance: CHOLECALCIFEROL
  16. ABILIFY [Concomitant]
     Active Substance: ARIPIPRAZOLE
  17. CYMBALTA [Concomitant]
     Active Substance: DULOXETINE HYDROCHLORIDE
  18. OMEGA 3-6-9 [Concomitant]
     Active Substance: FISH OIL
  19. GEODON [Concomitant]
     Active Substance: ZIPRASIDONE HYDROCHLORIDE\ZIPRASIDONE MESYLATE
  20. SPIRONOLACTONE. [Concomitant]
     Active Substance: SPIRONOLACTONE
  21. NUVIGIL [Concomitant]
     Active Substance: ARMODAFINIL
  22. MERCAPTOPURINE. [Concomitant]
     Active Substance: MERCAPTOPURINE
  23. ABILIFY [Concomitant]
     Active Substance: ARIPIPRAZOLE
  24. MULTIVITAMINS [Concomitant]
     Active Substance: VITAMINS
  25. XYREM [Suspect]
     Active Substance: SODIUM OXYBATE
     Dosage: 4 G, BID
     Route: 048
     Dates: start: 201511

REACTIONS (3)
  - Muscle spasms [Not Recovered/Not Resolved]
  - Road traffic accident [Unknown]
  - Back pain [Not Recovered/Not Resolved]

NARRATIVE: CASE EVENT DATE: 2015
